FAERS Safety Report 9932779 (Version 4)
Quarter: 2015Q3

REPORT INFORMATION
  Report Type: Spontaneous
  Country: US (occurrence: US)
  Receive Date: 20140228
  Receipt Date: 20150709
  Transmission Date: 20151125
  Serious: Yes (Hospitalization, Other)
  Sender: FDA-Public Use
  Company Number: US-GLAXOSMITHKLINE-A1027908A

PATIENT
  Sex: Male

DRUGS (4)
  1. LAMICTAL XR [Suspect]
     Active Substance: LAMOTRIGINE
     Dosage: 100 MG TABLETS; UNKNOWN DOSING
  2. LAMICTAL [Suspect]
     Active Substance: LAMOTRIGINE
     Indication: PRODUCT USED FOR UNKNOWN INDICATION
     Dosage: UNKNOWN
     Dates: start: 20130606
  3. LAMOTRIGINE. [Suspect]
     Active Substance: LAMOTRIGINE
     Indication: PRODUCT USED FOR UNKNOWN INDICATION
     Dosage: UNKNOWN
  4. LAMICTAL XR [Suspect]
     Active Substance: LAMOTRIGINE
     Indication: SEIZURE
     Dosage: 200 MG TABLETS UNKNOWN DOSING
     Route: 065
     Dates: start: 20130606

REACTIONS (4)
  - Laser therapy [Unknown]
  - Drug ineffective [Unknown]
  - Insomnia [Unknown]
  - Brain operation [Unknown]
